FAERS Safety Report 9144071 (Version 1)
Quarter: 2013Q1

REPORT INFORMATION
  Report Type: Spontaneous
  Country: JP (occurrence: JP)
  Receive Date: 20130306
  Receipt Date: 20130306
  Transmission Date: 20140127
  Serious: Yes (Hospitalization)
  Sender: FDA-Public Use
  Company Number: JP-PFIZER INC-2013068371

PATIENT
  Age: 48 Year
  Sex: Female

DRUGS (11)
  1. LYRICA [Suspect]
     Indication: FIBROMYALGIA
     Dosage: 25 MG, 2X/DAY
     Route: 048
  2. LYRICA [Suspect]
     Dosage: 200 MG/DAY
     Route: 048
  3. LYRICA [Suspect]
     Dosage: 300 MG, 1X/DAY
     Route: 048
  4. ALDACTONE [Concomitant]
     Dosage: UNK
     Route: 048
  5. FLUITRAN [Concomitant]
     Dosage: UNK
     Route: 048
  6. ZANTAC [Concomitant]
     Dosage: UNK
     Route: 048
  7. ZYRTEC [Concomitant]
     Dosage: UNK
     Route: 048
  8. TRANSAMIN [Concomitant]
     Dosage: UNK
     Route: 048
  9. MEILAX [Concomitant]
     Dosage: UNK
     Route: 048
  10. SINGULAIR [Concomitant]
     Dosage: UNK
     Route: 048
  11. LAC B [Concomitant]
     Dosage: UNK
     Route: 048

REACTIONS (2)
  - Palpitations [Unknown]
  - Oedema [Recovering/Resolving]
